FAERS Safety Report 6100714-1 (Version None)
Quarter: 2009Q1

REPORT INFORMATION
  Report Type: 
  Country: None (occurrence: None)
  Receive Date: 20090303
  Receipt Date: 20090218
  Transmission Date: 20090719
  Serious: Yes (Hospitalization, Other)
  Sender: FDA-Public Use
  Company Number: PHHY2009BR06113

PATIENT
  Sex: Male
  Weight: 78 kg

DRUGS (5)
  1. FORASEQ [Suspect]
     Indication: CHRONIC OBSTRUCTIVE PULMONARY DISEASE
     Dosage: UNK
  2. SYMBICORT [Suspect]
     Dosage: UNK
     Dates: start: 20070101
  3. SPIRIVA [Concomitant]
  4. BAMIFIX [Concomitant]
     Dosage: 300 MG, BID
     Route: 048
  5. NOVOPRAZOL [Concomitant]
     Dosage: 20 MG, QD
     Route: 048

REACTIONS (7)
  - CHRONIC OBSTRUCTIVE PULMONARY DISEASE [None]
  - GASTROOESOPHAGEAL REFLUX DISEASE [None]
  - INGUINAL HERNIA [None]
  - LUNG INFECTION [None]
  - OXYGEN SATURATION DECREASED [None]
  - PAIN [None]
  - URINARY TRACT DISORDER [None]
